FAERS Safety Report 24218942 (Version 2)
Quarter: 2024Q3

REPORT INFORMATION
  Report Type: Spontaneous
  Country: FR (occurrence: FR)
  Receive Date: 20240816
  Receipt Date: 20240824
  Transmission Date: 20241017
  Serious: Yes (Hospitalization)
  Sender: TEVA
  Company Number: None

PATIENT
  Age: 53 Year
  Sex: Male
  Weight: 70 kg

DRUGS (1)
  1. TADALAFIL [Suspect]
     Active Substance: TADALAFIL
     Indication: Erectile dysfunction
     Dosage: TADALAFIL TEVA
     Route: 048
     Dates: start: 20230101

REACTIONS (2)
  - Primary headache associated with sexual activity [Recovered/Resolved]
  - Reversible cerebral vasoconstriction syndrome [Not Recovered/Not Resolved]

NARRATIVE: CASE EVENT DATE: 20240714
